FAERS Safety Report 17059024 (Version 2)
Quarter: 2019Q4

REPORT INFORMATION
  Report Type: Report from Study
  Country: US (occurrence: US)
  Receive Date: 20191121
  Receipt Date: 20191126
  Transmission Date: 20200122
  Serious: Yes (Hospitalization, Other)
  Sender: FDA-Public Use
  Company Number: US-ACTELION-A-US2019-198390

PATIENT
  Sex: Female

DRUGS (7)
  1. TRACLEER [Suspect]
     Active Substance: BOSENTAN
     Indication: PULMONARY ARTERIAL HYPERTENSION
     Dosage: 32 MG, BID
     Route: 048
     Dates: start: 20191023
  2. SSD [Concomitant]
     Active Substance: SILVER SULFADIAZINE
  3. POLYETHYLENE GLYCOL [Concomitant]
     Active Substance: POLYETHYLENE GLYCOLS
  4. MULTIVITAMIN [Concomitant]
     Active Substance: VITAMINS
  5. SYNAGIS [Concomitant]
     Active Substance: PALIVIZUMAB
  6. BUDESONIDE. [Concomitant]
     Active Substance: BUDESONIDE
  7. SODIUM CHLORIDE. [Concomitant]
     Active Substance: SODIUM CHLORIDE

REACTIONS (1)
  - Gastrointestinal tube insertion [Recovered/Resolved]
